FAERS Safety Report 5451384-7 (Version None)
Quarter: 2007Q3

REPORT INFORMATION
  Report Type: 
  Country: None (occurrence: None)
  Receive Date: 20070911
  Receipt Date: 20070911
  Transmission Date: 20080115
  Serious: No
  Sender: FDA-Public Use
  Company Number: None

PATIENT
  Age: 32 Year
  Sex: Male
  Weight: 90.7194 kg

DRUGS (1)
  1. METHYLIN [Suspect]
     Indication: ATTENTION DEFICIT/HYPERACTIVITY DISORDER
     Dosage: 5MG DAILY PO
     Route: 048
     Dates: start: 19990115, end: 20070801

REACTIONS (5)
  - DISTURBANCE IN ATTENTION [None]
  - EXPIRED DRUG ADMINISTERED [None]
  - HEADACHE [None]
  - MEMORY IMPAIRMENT [None]
  - THERAPEUTIC PRODUCT CONTAMINATION [None]
